FAERS Safety Report 23898756 (Version 1)
Quarter: 2024Q2

REPORT INFORMATION
  Report Type: Spontaneous
  Country: US (occurrence: US)
  Receive Date: 20240525
  Receipt Date: 20240525
  Transmission Date: 20240715
  Serious: No
  Sender: FDA-Public Use
  Company Number: US-JNJFOC-20240535578

PATIENT

DRUGS (1)
  1. ROGAINE [Suspect]
     Active Substance: MINOXIDIL
     Indication: Product used for unknown indication
     Route: 061

REACTIONS (7)
  - Hair disorder [Unknown]
  - Seborrhoea [Unknown]
  - Alopecia [Unknown]
  - Product quality issue [Unknown]
  - Product container issue [Unknown]
  - Suspected counterfeit product [Unknown]
  - Product closure issue [Unknown]
